FAERS Safety Report 8819508 (Version 1)
Quarter: 2012Q4

REPORT INFORMATION
  Report Type: 
  Country: US (occurrence: US)
  Receive Date: 20120930
  Receipt Date: 20120930
  Transmission Date: 20130627
  Serious: No
  Sender: FDA-Public Use
  Company Number: US-ROXANE LABORATORIES, INC.-2012-RO-01709RO

PATIENT
  Age: 72 Year
  Sex: Female

DRUGS (1)
  1. BALSALAZIDE [Suspect]
     Indication: COLITIS ULCERATIVE
     Dosage: 6750 mg
     Route: 048
     Dates: start: 20120808, end: 20120810

REACTIONS (9)
  - Pain [Not Recovered/Not Resolved]
  - Arthralgia [Not Recovered/Not Resolved]
  - Palpitations [Not Recovered/Not Resolved]
  - Fatigue [Not Recovered/Not Resolved]
  - Pyrexia [Recovered/Resolved]
  - Diarrhoea [Recovered/Resolved]
  - Abdominal pain upper [Unknown]
  - Dizziness [Unknown]
  - Decreased appetite [Recovered/Resolved]
